FAERS Safety Report 5153875-5 (Version None)
Quarter: 2006Q4

REPORT INFORMATION
  Report Type: 
  Country: None (occurrence: None)
  Receive Date: 20061120
  Receipt Date: 20061107
  Transmission Date: 20070319
  Serious: Yes (Death, Hospitalization)
  Sender: FDA-Public Use
  Company Number: JP-JNJFOC-20061101825

PATIENT
  Age: 91 Year
  Sex: Female

DRUGS (7)
  1. RISPERDAL [Suspect]
     Indication: DRUG USE FOR UNKNOWN INDICATION
     Route: 048
  2. TIAPRIDE [Suspect]
     Indication: DRUG USE FOR UNKNOWN INDICATION
  3. DAONIL [Concomitant]
     Route: 048
  4. LASIX [Concomitant]
  5. ALDACTONE [Concomitant]
     Route: 048
  6. ALLOPURINOL [Concomitant]
     Route: 048
  7. DEPAS [Concomitant]
     Route: 048

REACTIONS (6)
  - ACUTE MYOCARDIAL INFARCTION [None]
  - FUNGAL INFECTION [None]
  - HYPOGLYCAEMIA [None]
  - NEUROLEPTIC MALIGNANT SYNDROME [None]
  - PNEUMONIA [None]
  - RENAL FAILURE ACUTE [None]
